FAERS Safety Report 6811951-2 (Version None)
Quarter: 2010Q3

REPORT INFORMATION
  Report Type: 
  Country: None (occurrence: None)
  Receive Date: 20100701
  Receipt Date: 20100617
  Transmission Date: 20110219
  Serious: Yes (Other)
  Sender: FDA-Public Use
  Company Number: CN-RANBAXY-2010RR-34005

PATIENT
  Age: 40 Year
  Sex: Female

DRUGS (5)
  1. AMLODIPINE [Suspect]
     Indication: HYPERTENSION
     Dosage: 2.5 MG, UNK
     Route: 048
     Dates: start: 20080401, end: 20081201
  2. MAGNESIUM SULFATE [Suspect]
     Indication: PRE-ECLAMPSIA
     Dosage: 2 G, UNK
     Route: 042
  3. MAGNESIUM SULFATE [Suspect]
     Dosage: 10 G, UNK
     Route: 042
  4. LABETALOL HCL [Concomitant]
     Indication: HYPERTENSION
  5. AMLODIPINE [Concomitant]
     Dosage: 2.5 MG, BID
     Route: 048

REACTIONS (3)
  - DRUG EXPOSURE DURING PREGNANCY [None]
  - DRUG INTERACTION [None]
  - NEUROMUSCULAR BLOCKADE [None]
